FAERS Safety Report 10093993 (Version 2)
Quarter: 2014Q2

REPORT INFORMATION
  Report Type: Spontaneous
  Country: JP (occurrence: JP)
  Receive Date: 20140422
  Receipt Date: 20140422
  Transmission Date: 20141212
  Serious: Yes (Life-Threatening, Other)
  Sender: FDA-Public Use
  Company Number: JP-ROCHE-1376145

PATIENT
  Age: 76 Year
  Sex: Male
  Weight: 57 kg

DRUGS (2)
  1. XELODA [Suspect]
     Indication: METASTATIC GASTRIC CANCER
     Dosage: LAST DOSE PRIOR TO SERIOUS ADVERSE EVENTS: 11/DEC/2013
     Route: 048
     Dates: start: 20131127
  2. CISPLATIN [Suspect]
     Indication: METASTATIC GASTRIC CANCER
     Route: 041
     Dates: start: 20131127

REACTIONS (4)
  - Febrile neutropenia [Recovered/Resolved]
  - Stomatitis [Unknown]
  - Diarrhoea [Unknown]
  - Disseminated intravascular coagulation [Recovered/Resolved]
